FAERS Safety Report 6843954-6 (Version None)
Quarter: 2010Q3

REPORT INFORMATION
  Report Type: 
  Country: None (occurrence: None)
  Receive Date: 20100715
  Receipt Date: 20100709
  Transmission Date: 20110219
  Serious: Yes (Other)
  Sender: FDA-Public Use
  Company Number: JP-PFIZER INC-2010086041

PATIENT
  Age: 89 Year
  Sex: Male

DRUGS (2)
  1. ALDACTONE [Suspect]
     Dosage: 25 MG, 1X/DAY
     Route: 048
  2. LASIX [Concomitant]
     Route: 048

REACTIONS (1)
  - CHROMATURIA [None]
